FAERS Safety Report 7516464-0 (Version None)
Quarter: 2011Q2

REPORT INFORMATION
  Report Type: 
  Country: None (occurrence: None)
  Receive Date: 20110601
  Receipt Date: 20110517
  Transmission Date: 20111010
  Serious: Yes (Hospitalization)
  Sender: FDA-Public Use
  Company Number: A0788114A

PATIENT
  Age: 63 Year
  Sex: Male
  Weight: 95.5 kg

DRUGS (8)
  1. ZYRTEC [Concomitant]
  2. PLAVIX [Concomitant]
  3. ZOCOR [Concomitant]
  4. AVANDIA [Suspect]
     Route: 048
     Dates: end: 20061101
  5. VASOTEC [Concomitant]
  6. NORVASC [Concomitant]
  7. METFORMIN HCL [Concomitant]
  8. THEOPHYLLINE [Concomitant]

REACTIONS (4)
  - ANGINA UNSTABLE [None]
  - CARDIAC FAILURE CONGESTIVE [None]
  - CORONARY ARTERY DISEASE [None]
  - MYOCARDIAL ISCHAEMIA [None]
